FAERS Safety Report 8249469-5 (Version None)
Quarter: 2012Q1

REPORT INFORMATION
  Report Type: 
  Country: None (occurrence: None)
  Receive Date: 20120327
  Receipt Date: 20120306
  Transmission Date: 20120608
  Serious: Yes (Death, Hospitalization, Other)
  Sender: FDA-Public Use
  Company Number: 2012PROUSA01132

PATIENT
  Age: 86 Year
  Sex: Male
  Weight: 90.2 kg

DRUGS (10)
  1. PROVENGE [Suspect]
     Indication: PROSTATE CANCER METASTATIC
     Dosage: 250 ML, SINGLE, INTRAVENOUS
     Route: 042
     Dates: start: 20120210, end: 20120210
  2. COUMADIN [Concomitant]
  3. NIFEREX /00198301/ (FERROGLYCINE SULFATE COMPLEX) [Concomitant]
  4. TRICOR /00499301/ (FENOFIBRATE) [Concomitant]
  5. PANTOPRAZOLE [Concomitant]
  6. COMBIVENT [Concomitant]
  7. LEXAPRO [Concomitant]
  8. FERROUS SULFATE TAB [Concomitant]
  9. SENNA /00571901/ (SENNOSIDE A+B) [Concomitant]
  10. ZESTRIL [Concomitant]

REACTIONS (13)
  - ANAEMIA [None]
  - RENAL FAILURE CHRONIC [None]
  - NAUSEA [None]
  - PROSTATIC SPECIFIC ANTIGEN INCREASED [None]
  - COAGULATION TEST ABNORMAL [None]
  - DISEASE PROGRESSION [None]
  - DEHYDRATION [None]
  - EATING DISORDER [None]
  - ASTHENIA [None]
  - BLOOD PRESSURE DECREASED [None]
  - MYALGIA [None]
  - FAILURE TO THRIVE [None]
  - INTERNATIONAL NORMALISED RATIO INCREASED [None]
